FAERS Safety Report 6819679-X (Version None)
Quarter: 2010Q3

REPORT INFORMATION
  Report Type: 
  Country: None (occurrence: None)
  Receive Date: 20100707
  Receipt Date: 20100701
  Transmission Date: 20110219
  Serious: Yes (Other)
  Sender: FDA-Public Use
  Company Number: FR-BRISTOL-MYERS SQUIBB COMPANY-15177744

PATIENT
  Age: 57 Year
  Sex: Female

DRUGS (2)
  1. ELISOR TABS [Suspect]
     Indication: HYPERLIPIDAEMIA
     Dosage: CONTINUED UNTIL THE END OF 2006,
     Dates: start: 20030101, end: 20060101
  2. PRAVASTATIN SODIUM [Suspect]
     Indication: HYPERLIPIDAEMIA
     Dates: start: 20060101, end: 20100101

REACTIONS (1)
  - ERYTHEMA NODOSUM [None]
